FAERS Safety Report 6901940-1 (Version None)
Quarter: 2010Q3

REPORT INFORMATION
  Report Type: 
  Country: None (occurrence: None)
  Receive Date: 20100803
  Receipt Date: 20080331
  Transmission Date: 20110219
  Serious: No
  Sender: FDA-Public Use
  Company Number: US-PFIZER INC-2008017285

PATIENT
  Sex: Male
  Weight: 94.3 kg

DRUGS (7)
  1. LYRICA [Suspect]
     Route: 048
     Dates: start: 20080107
  2. HYDROCHLOROTHIAZIDE [Concomitant]
  3. COREG [Concomitant]
  4. ZETIA [Concomitant]
  5. LITHIUM [Concomitant]
  6. VITAMIN TAB [Concomitant]
  7. ACETYLSALICYLIC ACID SRT [Concomitant]

REACTIONS (3)
  - BURNING SENSATION [None]
  - DRUG INEFFECTIVE [None]
  - VISION BLURRED [None]
